FAERS Safety Report 6154209-X (Version None)
Quarter: 2009Q2

REPORT INFORMATION
  Report Type: 
  Country: None (occurrence: None)
  Receive Date: 20090414
  Receipt Date: 20071010
  Transmission Date: 20091009
  Serious: Yes (Hospitalization, Other)
  Sender: FDA-Public Use
  Company Number: US-ASTRAZENECA-2006UW10817

PATIENT
  Age: 21046 Day
  Sex: Female
  Weight: 85.7 kg

DRUGS (25)
  1. SEROQUEL [Suspect]
     Indication: DEPRESSION
     Dosage: 25 MG TO 200 MG
     Route: 048
     Dates: start: 20010309
  2. SEROQUEL [Suspect]
     Indication: INSOMNIA
     Dosage: 25 MG TO 200 MG
     Route: 048
     Dates: start: 20010309
  3. GLUCOTROL [Concomitant]
  4. NEURONTIN [Concomitant]
  5. CYMBALTA [Concomitant]
  6. CADUET [Concomitant]
  7. ZEBETA [Concomitant]
  8. MAVIK [Concomitant]
  9. ALBUTEROL [Concomitant]
  10. SPIRIVA [Concomitant]
  11. NOVOLIN [Concomitant]
  12. NITROGLYCERIN [Concomitant]
  13. ZETIA [Concomitant]
  14. ZOCOR [Concomitant]
  15. FLUOXETINE [Concomitant]
  16. ALPRAZOLAM [Concomitant]
  17. CYCLOBENZAPRINE [Concomitant]
  18. FAMOTIDINE [Concomitant]
  19. METHYLPREDNISOLONE 4MG TAB [Concomitant]
  20. KETOROLAC [Concomitant]
  21. PAROXETINE HCL [Concomitant]
  22. DITROPAN [Concomitant]
  23. TAGAMET [Concomitant]
  24. SOMA [Concomitant]
  25. DICYCLOMINE [Concomitant]

REACTIONS (35)
  - ACUTE RESPIRATORY FAILURE [None]
  - ACUTE SINUSITIS [None]
  - ANGINA UNSTABLE [None]
  - ASTHENIA [None]
  - BACK PAIN [None]
  - BREAST PAIN [None]
  - BRONCHITIS [None]
  - CATARACT [None]
  - CHOLECYSTITIS CHRONIC [None]
  - CHOLELITHIASIS [None]
  - CONJUNCTIVITIS [None]
  - DIABETES MELLITUS [None]
  - DYSPEPSIA [None]
  - EMPHYSEMA [None]
  - HIATUS HERNIA [None]
  - HYPOAESTHESIA [None]
  - HYPOXIA [None]
  - INTERTRIGO [None]
  - LYMPHADENITIS [None]
  - MUSCULOSKELETAL CHEST PAIN [None]
  - NOCTURIA [None]
  - OSTEOARTHRITIS [None]
  - OTITIS MEDIA [None]
  - PAIN IN EXTREMITY [None]
  - PHARYNGITIS [None]
  - PNEUMONIA [None]
  - PRURITUS [None]
  - REFLUX OESOPHAGITIS [None]
  - RHABDOMYOLYSIS [None]
  - RHINITIS [None]
  - TENOSYNOVITIS [None]
  - TENSION HEADACHE [None]
  - TRIGGER FINGER [None]
  - URINARY TRACT INFECTION [None]
  - VISION BLURRED [None]
